FAERS Safety Report 10045267 (Version 4)
Quarter: 2014Q2

REPORT INFORMATION
  Report Type: Spontaneous
  Country: BR (occurrence: BR)
  Receive Date: 20140328
  Receipt Date: 20140513
  Transmission Date: 20141212
  Serious: Yes (Hospitalization, Other)
  Sender: FDA-Public Use
  Company Number: BR-009507513-1304BRA005532

PATIENT
  Age: 62 Year
  Sex: Female
  Weight: 54 kg

DRUGS (8)
  1. PEG-INTRON [Suspect]
     Indication: CHRONIC HEPATITIS C
     Dosage: 80 MICROGRAM, QW
     Route: 058
     Dates: start: 20120911, end: 20140328
  2. RIBAVIRIN (NON-MERCK) [Concomitant]
     Indication: CHRONIC HEPATITIS C
     Dosage: UNK UNK, QAM
     Route: 048
     Dates: start: 20120911, end: 20140328
  3. RIBAVIRIN (NON-MERCK) [Concomitant]
     Dosage: 500 MG, QPM
     Route: 048
     Dates: start: 20121012
  4. DEMIL [Concomitant]
     Indication: PROPHYLAXIS
     Dosage: 20 MG, QD
     Route: 048
     Dates: start: 201301
  5. FOLIC ACID [Concomitant]
     Indication: ANAEMIA PROPHYLAXIS
     Dosage: 6 MG, QD
     Route: 048
     Dates: start: 20121012
  6. TECTA [Concomitant]
     Indication: GASTRITIS
     Dosage: 40 MG, QD
     Route: 065
  7. EXODUS (ESCITALOPRAM OXALATE) [Concomitant]
     Indication: PROPHYLAXIS
     Dosage: 10 MG, QD
     Route: 065
     Dates: start: 20121012
  8. EXODUS (ESCITALOPRAM OXALATE) [Concomitant]
     Indication: ANXIETY

REACTIONS (31)
  - Vomiting [Recovered/Resolved]
  - Hepatic function abnormal [Not Recovered/Not Resolved]
  - Hypersensitivity [Unknown]
  - Diarrhoea [Recovered/Resolved]
  - Pyrexia [Recovered/Resolved]
  - Burning sensation [Unknown]
  - Bone pain [Not Recovered/Not Resolved]
  - Anaemia [Not Recovered/Not Resolved]
  - Pain in extremity [Not Recovered/Not Resolved]
  - Pain [Not Recovered/Not Resolved]
  - Back pain [Recovered/Resolved]
  - Candida infection [Recovered/Resolved]
  - Tinea pedis [Not Recovered/Not Resolved]
  - Musculoskeletal pain [Not Recovered/Not Resolved]
  - Weight decreased [Not Recovered/Not Resolved]
  - Dyspnoea [Recovered/Resolved]
  - Chest pain [Recovered/Resolved]
  - Pyrexia [Recovered/Resolved]
  - Headache [Not Recovered/Not Resolved]
  - Nausea [Not Recovered/Not Resolved]
  - Abdominal discomfort [Not Recovered/Not Resolved]
  - Incorrect drug administration duration [Unknown]
  - Wound [Not Recovered/Not Resolved]
  - Myalgia [Recovering/Resolving]
  - Wound [Not Recovered/Not Resolved]
  - Wound [Not Recovered/Not Resolved]
  - Somnolence [Not Recovered/Not Resolved]
  - Tremor [Not Recovered/Not Resolved]
  - Rash macular [Recovering/Resolving]
  - Rash macular [Recovered/Resolved]
  - Joint swelling [Recovering/Resolving]
